FAERS Safety Report 5868055-5 (Version None)
Quarter: 2008Q3

REPORT INFORMATION
  Report Type: 
  Country: None (occurrence: None)
  Receive Date: 20080902
  Receipt Date: 20080826
  Transmission Date: 20090109
  Serious: Yes (Other)
  Sender: FDA-Public Use
  Company Number: FR-ASTRAZENECA-2008CG01265

PATIENT
  Age: 16993 Day
  Sex: Female

DRUGS (9)
  1. XYLOCAINE [Suspect]
     Route: 058
     Dates: start: 20080805, end: 20080805
  2. VISIPAQUE [Suspect]
     Route: 013
     Dates: start: 20080805, end: 20080805
  3. MORPHINE [Suspect]
     Route: 042
     Dates: start: 20080805, end: 20080805
  4. LEVOTHYROX [Concomitant]
     Route: 048
  5. ATENOLOL [Concomitant]
     Route: 048
  6. DONORMYL [Concomitant]
     Route: 048
  7. AMOXICILLIN [Concomitant]
     Route: 042
     Dates: start: 20080805
  8. PROFENID [Concomitant]
     Route: 042
     Dates: start: 20080805, end: 20080805
  9. PERFALGAN [Concomitant]
     Route: 042
     Dates: start: 20080805, end: 20080805

REACTIONS (3)
  - ANAPHYLACTOID REACTION [None]
  - DYSPNOEA [None]
  - NASAL OEDEMA [None]
